FAERS Safety Report 4555355-4 (Version None)
Quarter: 2005Q1

REPORT INFORMATION
  Report Type: 
  Country: None (occurrence: None)
  Receive Date: 20050118
  Receipt Date: 20050118
  Transmission Date: 20050727
  Serious: Yes (Death)
  Sender: FDA-Public Use
  Company Number: None

PATIENT
  Sex: Male
  Weight: 16.3 kg

DRUGS (7)
  1. VINCRISTINE [Suspect]
     Indication: ACUTE LYMPHOCYTIC LEUKAEMIA
     Dosage: 1 MG WKLY INTRAVENOUS
     Route: 042
     Dates: start: 20040319, end: 20040402
  2. VINCRISTINE [Suspect]
     Indication: LEUKAEMIA RECURRENT
     Dosage: 1 MG WKLY INTRAVENOUS
     Route: 042
     Dates: start: 20040319, end: 20040402
  3. DOXORUBICIN HCL [Suspect]
     Dosage: 41 MG X 1 INTRAVENOU
     Route: 042
     Dates: start: 20040319, end: 20040319
  4. IT ARA-C [Concomitant]
  5. PEG ASPARAGINASE [Concomitant]
  6. METHOTREXATE [Concomitant]
  7. PREDNISONE [Concomitant]

REACTIONS (3)
  - DISEASE RECURRENCE [None]
  - PULMONARY HAEMORRHAGE [None]
  - RESPIRATORY ARREST [None]
